FAERS Safety Report 4862244-4 (Version None)
Quarter: 2005Q4

REPORT INFORMATION
  Report Type: 
  Country: None (occurrence: None)
  Receive Date: 20051130
  Receipt Date: 20050725
  Transmission Date: 20060501
  Serious: Yes (Hospitalization)
  Sender: FDA-Public Use
  Company Number: BDI-007282

PATIENT
  Age: 78 Year
  Sex: Female

DRUGS (2)
  1. ISOVUE-300 [Suspect]
     Indication: ADRENAL MASS
     Dosage: 120 ML ONCE IV
     Route: 042
     Dates: start: 20050602, end: 20050602
  2. ISOVUE-300 [Suspect]
     Indication: COMPUTERISED TOMOGRAM ABDOMEN
     Dosage: 120 ML ONCE IV
     Route: 042
     Dates: start: 20050602, end: 20050602

REACTIONS (2)
  - DYSPNOEA [None]
  - PHARYNGEAL OEDEMA [None]
